FAERS Safety Report 8024598-X (Version None)
Quarter: 2012Q1

REPORT INFORMATION
  Report Type: 
  Country: None (occurrence: None)
  Receive Date: 20120103
  Receipt Date: 20111219
  Transmission Date: 20120608
  Serious: Yes (Other)
  Sender: FDA-Public Use
  Company Number: 1000025878

PATIENT
  Age: 52 Year
  Sex: Female

DRUGS (1)
  1. FOSFOMYCIN (FOSFOMYCIN TROMETAMOL) (GRANULATE) [Suspect]
     Indication: CYSTITIS
     Dosage: (3000 MG, ONCE), ORAL
     Route: 048
     Dates: start: 20110509, end: 20110509

REACTIONS (2)
  - BLISTER [None]
  - URTICARIA [None]
